FAERS Safety Report 4644515-X (Version None)
Quarter: 2005Q2

REPORT INFORMATION
  Report Type: 
  Country: None (occurrence: None)
  Receive Date: 20050426
  Receipt Date: 20050405
  Transmission Date: 20051028
  Serious: Yes (Other)
  Sender: FDA-Public Use
  Company Number: US-JNJFOC-20050202204

PATIENT
  Sex: Male
  Weight: 102.51 kg

DRUGS (5)
  1. REMICADE [Suspect]
     Dosage: 50 CC
     Route: 042
  2. REMICADE [Suspect]
     Dosage: 49 CC
     Route: 042
  3. REMICADE [Suspect]
     Dosage: 49 CC
     Route: 042
  4. REMICADE [Suspect]
     Dosage: 49 CC
     Route: 042
  5. REMICADE [Suspect]
     Indication: CROHN'S DISEASE
     Route: 042

REACTIONS (3)
  - FURUNCLE [None]
  - HERPES ZOSTER [None]
  - STAPHYLOCOCCAL INFECTION [None]
